FAERS Safety Report 15012658 (Version 1)
Quarter: 2018Q2

REPORT INFORMATION
  Report Type: Spontaneous
  Country: JP (occurrence: JP)
  Receive Date: 20180614
  Receipt Date: 20180614
  Transmission Date: 20180711
  Serious: Yes (Other)
  Sender: FDA-Public Use
  Company Number: JP-NAPPMUNDI-GBR-2018-0056653

PATIENT
  Sex: Male

DRUGS (1)
  1. OXINORM (OXYCODONE HYDROCHLORIDE) [Suspect]
     Active Substance: OXYCODONE HYDROCHLORIDE
     Indication: CANCER PAIN
     Dosage: 30 MG, UNK
     Route: 048

REACTIONS (3)
  - Drug dependence [Recovered/Resolved]
  - Pneumonia [Unknown]
  - Pyrexia [Unknown]
